FAERS Safety Report 4282607-8 (Version None)
Quarter: 2004Q1

REPORT INFORMATION
  Report Type: 
  Country: None (occurrence: None)
  Receive Date: 20040130
  Receipt Date: 20021216
  Transmission Date: 20041129
  Serious: Yes (Other)
  Sender: FDA-Public Use
  Company Number: US-BRISTOL-MYERS SQUIBB COMPANY-12139523

PATIENT
  Age: 40 Year
  Sex: Female

DRUGS (3)
  1. SERZONE [Suspect]
     Indication: DEPRESSION
     Dosage: TOOK UP TO 800 MG
     Route: 048
     Dates: end: 20020101
  2. CLARINEX [Concomitant]
     Indication: MULTIPLE ALLERGIES
  3. PRILOSEC [Concomitant]
     Indication: GASTRIC DISORDER

REACTIONS (3)
  - HEPATIC ENZYME INCREASED [None]
  - HEPATITIS [None]
  - HEPATOCELLULAR DAMAGE [None]
